FAERS Safety Report 19097335 (Version 1)
Quarter: 2021Q2

REPORT INFORMATION
  Report Type: Spontaneous
  Country: US (occurrence: US)
  Receive Date: 20210406
  Receipt Date: 20210406
  Transmission Date: 20210717
  Serious: Yes (Other)
  Sender: FDA-Public Use
  Company Number: US-BEAUTYAVENUES-2021-US-006249

PATIENT
  Age: 31 Year
  Sex: Female
  Weight: 84.82 kg

DRUGS (1)
  1. SANITIZING HAND PRODUCT ? NONSPECIFIC [ALCOHOL] [Suspect]
     Active Substance: ALCOHOL
     Indication: INFECTION PROPHYLAXIS
     Dosage: UNSPECIFIED AMOUNT APPLIED TO HANDS
     Route: 061
     Dates: start: 20210319, end: 20210319

REACTIONS (3)
  - Urticaria [Unknown]
  - Pruritus [Recovering/Resolving]
  - Rash [Recovering/Resolving]

NARRATIVE: CASE EVENT DATE: 20210319
